FAERS Safety Report 10710387 (Version 5)
Quarter: 2015Q2

REPORT INFORMATION
  Report Type: Spontaneous
  Country: IT (occurrence: IT)
  Receive Date: 20150114
  Receipt Date: 20150416
  Transmission Date: 20150821
  Serious: Yes (Death)
  Sender: FDA-Public Use
  Company Number: IT-TEVA-534047ISR

PATIENT
  Age: 49 Year
  Sex: Female

DRUGS (3)
  1. DESAMETHASONE [Concomitant]
     Active Substance: DEXAMETHASONE
     Indication: PRODUCT USED FOR UNKNOWN INDICATION
     Dosage: 16 MG
     Route: 048
     Dates: start: 20141104, end: 20141228
  2. CAPECITABINE. [Suspect]
     Active Substance: CAPECITABINE
     Indication: BREAST CANCER
     Dosage: 2500 MG/M2 CYCLICAL
     Route: 048
     Dates: start: 20141119, end: 20141228
  3. TYVERB - 250 MG COMPRESSA RIVESTITA CON FILM - GLAXO GROUP LIMITED [Suspect]
     Active Substance: LAPATINIB
     Indication: BREAST CANCER
     Dosage: 1250 MG DAILY
     Route: 048
     Dates: start: 20141119, end: 20141228

REACTIONS (2)
  - Brain abscess [Fatal]
  - Pneumonia fungal [Fatal]

NARRATIVE: CASE EVENT DATE: 20141228
